FAERS Safety Report 8362250 (Version 2)
Quarter: 2014Q2

REPORT INFORMATION
  Report Type: Report from Study
  Country: DK (occurrence: DK)
  Receive Date: 20120130
  Receipt Date: 20140512
  Transmission Date: 20141212
  Serious: Yes (Hospitalization)
  Sender: FDA-Public Use
  Company Number: DK-GLAXOSMITHKLINE-Z0013687A

PATIENT
  Age: 68 Year
  Sex: Female
  Weight: 77 kg

DRUGS (3)
  1. DARAPLADIB [Suspect]
     Indication: ACUTE CORONARY SYNDROME
     Dosage: 160MG PER DAY
     Dates: start: 20110701
  2. CARVEDILOL [Suspect]
     Indication: HYPERTENSION
     Dosage: 25MG TWICE PER DAY
     Route: 048
     Dates: start: 20111206, end: 20111208
  3. AMLODIPIN [Suspect]
     Indication: HYPERTENSION
     Dosage: 5MG PER DAY
     Route: 048
     Dates: start: 20111206, end: 20111209

REACTIONS (1)
  - Dizziness [Recovered/Resolved]
